FAERS Safety Report 8015470-X (Version None)
Quarter: 2011Q4

REPORT INFORMATION
  Report Type: 
  Country: None (occurrence: None)
  Receive Date: 20111230
  Receipt Date: 20111216
  Transmission Date: 20120403
  Serious: Yes (Hospitalization)
  Sender: FDA-Public Use
  Company Number: IT-RANBAXY-2011R1-50863

PATIENT

DRUGS (5)
  1. VERAPAMIL HYDROCHLORIDE [Concomitant]
     Indication: PRODUCT USED FOR UNKNOWN INDICATION
     Dosage: UNK
     Route: 048
  2. CITALOPRAM [Concomitant]
     Indication: PRODUCT USED FOR UNKNOWN INDICATION
     Dosage: UNK
     Route: 048
  3. AMOXICILLIN [Suspect]
     Indication: PYREXIA
     Dosage: 3 POSOLOGICAL UNITS DAILY
     Route: 048
     Dates: start: 20111103, end: 20111107
  4. COUMADIN [Suspect]
     Indication: ATRIAL FIBRILLATION
     Dosage: 1 POSOLOGICAL UNIT, PRN
     Route: 048
     Dates: start: 19970101, end: 20111114
  5. NEXIUM 20 MG GASTR RESISTANT TABLETS [Concomitant]
     Indication: PRODUCT USED FOR UNKNOWN INDICATION
     Dosage: UNK
     Route: 048

REACTIONS (3)
  - ANAEMIA [None]
  - MUSCLE HAEMORRHAGE [None]
  - HYPOCOAGULABLE STATE [None]
